FAERS Safety Report 10244324 (Version 2)
Quarter: 2014Q2

REPORT INFORMATION
  Report Type: Spontaneous
  Country: JP (occurrence: JP)
  Receive Date: 20140618
  Receipt Date: 20140618
  Transmission Date: 20141212
  Serious: Yes (Death)
  Sender: FDA-Public Use
  Company Number: JP-ACTELION-A-CH2014-99290

PATIENT
  Age: 17 Year
  Sex: Female

DRUGS (4)
  1. TRACLEER [Suspect]
     Indication: PULMONARY ARTERIAL HYPERTENSION
     Dosage: 125 MG, BID
     Route: 048
     Dates: start: 200509, end: 2006
  2. TRACLEER [Suspect]
     Dosage: 125 MG, QD
     Route: 048
     Dates: start: 2006, end: 201405
  3. EPOPROSTENOL [Concomitant]
  4. OXYGEN [Concomitant]

REACTIONS (3)
  - Pulmonary arterial hypertension [Fatal]
  - Condition aggravated [Fatal]
  - Hepatic function abnormal [Recovered/Resolved]
